FAERS Safety Report 18878142 (Version 1)
Quarter: 2021Q1

REPORT INFORMATION
  Report Type: Spontaneous
  Country: US (occurrence: US)
  Receive Date: 20210211
  Receipt Date: 20210211
  Transmission Date: 20210420
  Serious: Yes (Other)
  Sender: FDA-Public Use
  Company Number: US-GLAXOSMITHKLINE-US2021GSK036698

PATIENT
  Sex: Female

DRUGS (4)
  1. RANITIDINE. [Suspect]
     Active Substance: RANITIDINE
     Indication: ABDOMINAL HERNIA
     Dosage: 150 MG
     Route: 065
     Dates: start: 201801, end: 202005
  2. RANITIDINE CAPSULE [Suspect]
     Active Substance: RANITIDINE
     Indication: ABDOMINAL HERNIA
     Dosage: 150 MG
     Route: 065
     Dates: start: 200501, end: 201801
  3. ZANTAC [Suspect]
     Active Substance: RANITIDINE HYDROCHLORIDE
     Indication: ABDOMINAL HERNIA
     Dosage: 150 MG
     Route: 065
     Dates: start: 200501, end: 201801
  4. RANITIDINE. [Suspect]
     Active Substance: RANITIDINE
     Indication: ABDOMINAL HERNIA
     Dosage: 150 MG
     Route: 065
     Dates: start: 201801, end: 202005

REACTIONS (1)
  - Breast cancer [Unknown]
